FAERS Safety Report 8286557-1 (Version None)
Quarter: 2012Q2

REPORT INFORMATION
  Report Type: 
  Country: None (occurrence: None)
  Receive Date: 20120416
  Receipt Date: 20120402
  Transmission Date: 20120825
  Serious: Yes (Other)
  Sender: FDA-Public Use
  Company Number: US-SANOFI-AVENTIS-2012SA022659

PATIENT
  Age: 61 Year
  Sex: Female

DRUGS (3)
  1. NOVOLOG [Suspect]
     Route: 065
  2. SOLOSTAR [Suspect]
     Dates: start: 20090101
  3. LANTUS [Suspect]
     Dosage: DOSE:70 UNIT(S)
     Route: 058
     Dates: start: 20090101

REACTIONS (2)
  - UPPER LIMB FRACTURE [None]
  - MUSCULOSKELETAL PAIN [None]
